FAERS Safety Report 7362186-9 (Version None)
Quarter: 2011Q1

REPORT INFORMATION
  Report Type: 
  Country: None (occurrence: None)
  Receive Date: 20110318
  Receipt Date: 20110314
  Transmission Date: 20110831
  Serious: Yes (Other)
  Sender: FDA-Public Use
  Company Number: JP-PFIZER INC-2011055863

PATIENT
  Age: 29 Year
  Sex: Male

DRUGS (3)
  1. DASEN [Concomitant]
     Dosage: 3 TABLETS/DAY
     Route: 048
  2. AZULFIDINE [Suspect]
     Indication: RHEUMATOID ARTHRITIS
     Dosage: 1000 MG/DAY
     Route: 048
     Dates: start: 20101113
  3. LOXONIN [Concomitant]
     Dosage: 3 TABLETS/DAY
     Route: 048
     Dates: start: 20101106

REACTIONS (2)
  - HAEMATOCHEZIA [None]
  - ABNORMAL SENSATION IN EYE [None]
